FAERS Safety Report 4989124-8 (Version None)
Quarter: 2006Q2

REPORT INFORMATION
  Report Type: 
  Country: None (occurrence: None)
  Receive Date: 20060425
  Receipt Date: 20040708
  Transmission Date: 20061013
  Serious: Yes (Other)
  Sender: FDA-Public Use
  Company Number: 8006865

PATIENT
  Age: 12 Month

DRUGS (6)
  1. KEPPRA [Suspect]
     Indication: CONVULSION
     Dosage: PO
     Route: 048
  2. KEPPRA [Suspect]
     Indication: DISEASE RECURRENCE
     Dosage: PO
     Route: 048
  3. KEPPRA [Suspect]
     Indication: CONVULSION
     Dosage: PO
     Route: 048
     Dates: start: 20040101, end: 20040101
  4. KEPPRA [Suspect]
     Indication: DISEASE RECURRENCE
     Dosage: PO
     Route: 048
     Dates: start: 20040101, end: 20040101
  5. KEPPRA [Suspect]
     Indication: CONVULSION
     Dosage: PO
     Route: 048
     Dates: start: 20040101
  6. KEPPRA [Suspect]
     Indication: DISEASE RECURRENCE
     Dosage: PO
     Route: 048
     Dates: start: 20040101

REACTIONS (2)
  - DIZZINESS [None]
  - INCORRECT DOSE ADMINISTERED [None]
